FAERS Safety Report 7283010-9 (Version None)
Quarter: 2011Q1

REPORT INFORMATION
  Report Type: 
  Country: None (occurrence: None)
  Receive Date: 20110209
  Receipt Date: 20110201
  Transmission Date: 20110831
  Serious: Yes (Hospitalization)
  Sender: FDA-Public Use
  Company Number: NL-GENZYME-CLOF-1001315

PATIENT
  Sex: Male
  Weight: 103 kg

DRUGS (8)
  1. EVOLTRA [Suspect]
     Indication: ACUTE LYMPHOCYTIC LEUKAEMIA
     Dosage: 44 MG, QDX5
     Route: 042
     Dates: start: 20100705, end: 20100709
  2. VINCRISTINE [Suspect]
     Indication: ACUTE LYMPHOCYTIC LEUKAEMIA
     Dosage: 1 MG, NA
     Route: 042
     Dates: start: 20100930, end: 20101028
  3. ESOMEPRAZOLE [Concomitant]
     Indication: PRODUCT USED FOR UNKNOWN INDICATION
     Dosage: 40 MG, UNK
     Route: 048
     Dates: start: 20101028, end: 20101101
  4. FOLIUMZUUR [Concomitant]
     Indication: PROPHYLAXIS
     Dosage: 15 MG, UNK
     Route: 048
     Dates: start: 20101030, end: 20101031
  5. PREDNISOLONE [Suspect]
     Indication: PREMEDICATION
     Dosage: 90 MG, BID
     Route: 048
     Dates: start: 20100930, end: 20101006
  6. METHOTREXATE [Suspect]
     Indication: ACUTE LYMPHOCYTIC LEUKAEMIA
     Dosage: 11000 MG, NA
     Route: 042
     Dates: start: 20100930, end: 20101022
  7. VALACICLOVIR [Concomitant]
     Indication: PROPHYLAXIS
     Dosage: 500 MG, UNK
     Route: 048
     Dates: start: 20101028, end: 20101101
  8. MERCAPTOPURINE [Suspect]
     Indication: ACUTE LYMPHOCYTIC LEUKAEMIA
     Dosage: 100 MG, QD
     Route: 048
     Dates: start: 20100930, end: 20101020

REACTIONS (1)
  - PULMONARY EMBOLISM [None]
